FAERS Safety Report 25456550 (Version 1)
Quarter: 2025Q2

REPORT INFORMATION
  Report Type: Spontaneous
  Country: FR (occurrence: FR)
  Receive Date: 20250619
  Receipt Date: 20250619
  Transmission Date: 20250716
  Serious: Yes (Other)
  Sender: CIPLA
  Company Number: FR-AFSSAPS-RE2025000523

PATIENT

DRUGS (1)
  1. ESOMEPRAZOLE [Suspect]
     Active Substance: ESOMEPRAZOLE
     Indication: Gastrooesophageal reflux disease
     Dosage: 40 MILLIGRAM, QD
     Route: 048
     Dates: start: 20250501, end: 20250530

REACTIONS (1)
  - Extrasystoles [Recovering/Resolving]

NARRATIVE: CASE EVENT DATE: 20250501
